FAERS Safety Report 9439298 (Version 2)
Quarter: 2014Q1

REPORT INFORMATION
  Report Type: Spontaneous
  Country: US (occurrence: US)
  Receive Date: 20130804
  Receipt Date: 20140219
  Transmission Date: 20141002
  Serious: No
  Sender: FDA-Public Use
  Company Number: US-B.I. PHARMACEUTICALS,INC./RIDGEFIELD-2013-BI-22624BP

PATIENT
  Age: 48 Year
  Sex: Female
  Weight: 63 kg

DRUGS (5)
  1. COMBIVENT [Suspect]
     Indication: CHRONIC OBSTRUCTIVE PULMONARY DISEASE
     Dosage: STRENGTH: 20 MCG / 100 MCG; DAILY DOSE: 80 MCG/ 400 MCG
     Route: 055
     Dates: start: 201302
  2. OPANA ER [Concomitant]
     Indication: INTERVERTEBRAL DISC PROTRUSION
     Dosage: 20 MG
     Route: 048
  3. LYRICA [Concomitant]
     Indication: NERVE INJURY
     Dosage: 300 MG
     Route: 048
  4. ZANAFLEX [Concomitant]
     Indication: MYALGIA
     Dosage: 4 MG
     Route: 048
  5. BYSTOLIC [Concomitant]
     Indication: HYPERTENSION
     Dosage: 5 MG
     Route: 048

REACTIONS (3)
  - Dyspnoea [Recovered/Resolved]
  - Incorrect route of drug administration [Recovered/Resolved]
  - Product quality issue [Recovered/Resolved]
